FAERS Safety Report 17740437 (Version 3)
Quarter: 2020Q3

REPORT INFORMATION
  Report Type: Spontaneous
  Country: US (occurrence: US)
  Receive Date: 20200504
  Receipt Date: 20200701
  Transmission Date: 20201102
  Serious: No
  Sender: FDA-Public Use
  Company Number: US-SA-2020SA113684

PATIENT

DRUGS (2)
  1. METFORMIN [Concomitant]
     Active Substance: METFORMIN HYDROCHLORIDE
     Dosage: UNK
     Route: 065
  2. LANTUS SOLOSTAR [Suspect]
     Active Substance: INSULIN GLARGINE
     Indication: TYPE 2 DIABETES MELLITUS
     Dosage: 30 UNITS AM 20 PM, BID
     Route: 065
     Dates: start: 202004

REACTIONS (6)
  - Cardiac disorder [Unknown]
  - Fatigue [Unknown]
  - Blood glucose increased [Recovering/Resolving]
  - Inappropriate schedule of product administration [Unknown]
  - Product storage error [Unknown]
  - Drug ineffective [Recovering/Resolving]

NARRATIVE: CASE EVENT DATE: 2020
